FAERS Safety Report 21784019 (Version 1)
Quarter: 2022Q4

REPORT INFORMATION
  Report Type: Spontaneous
  Country: US (occurrence: US)
  Receive Date: 20221227
  Receipt Date: 20221227
  Transmission Date: 20230113
  Serious: No
  Sender: FDA-Public Use
  Company Number: US-PFIZER INC-PV202200129490

PATIENT
  Age: 72 Year
  Sex: Female

DRUGS (1)
  1. CAMPTOSAR [Suspect]
     Active Substance: IRINOTECAN HYDROCHLORIDE
     Dosage: 70 MG, CYCLIC,100 MG 2 VIALS 70 MG Q 14 DAYS
     Dates: start: 20221219

REACTIONS (2)
  - Product prescribing error [Unknown]
  - Illness [Unknown]

NARRATIVE: CASE EVENT DATE: 20221201
